APPROVED DRUG PRODUCT: PERPHENAZINE
Active Ingredient: PERPHENAZINE
Strength: 2MG
Dosage Form/Route: TABLET;ORAL
Application: A040226 | Product #001 | TE Code: AB
Applicant: PH HEALTH LTD
Approved: Dec 31, 1998 | RLD: No | RS: No | Type: RX